FAERS Safety Report 4610924-8 (Version None)
Quarter: 2005Q2

REPORT INFORMATION
  Report Type: 
  Country: None (occurrence: None)
  Receive Date: 20050303
  Receipt Date: 20050124
  Transmission Date: 20051028
  Serious: No
  Sender: FDA-Public Use
  Company Number: 2005BI001759

PATIENT
  Age: 51 Year
  Sex: Female

DRUGS (1)
  1. AMEVIVE [Suspect]
     Indication: PSORIASIS
     Dates: start: 20041101

REACTIONS (2)
  - CHEST PAIN [None]
  - VENTRICULAR EXTRASYSTOLES [None]
